FAERS Safety Report 6553723-2 (Version None)
Quarter: 2010Q1

REPORT INFORMATION
  Report Type: 
  Country: None (occurrence: None)
  Receive Date: 20100127
  Receipt Date: 20100114
  Transmission Date: 20100710
  Serious: Yes (Hospitalization)
  Sender: FDA-Public Use
  Company Number: BY-CELGENEUS-013-50794-09030601

PATIENT
  Age: 70 Year
  Sex: Male

DRUGS (3)
  1. VIDAZA [Suspect]
     Route: 051
     Dates: start: 20090126
  2. TAVANIC [Concomitant]
     Indication: DRUG USE FOR UNKNOWN INDICATION
     Route: 051
     Dates: start: 20090304, end: 20090306
  3. PIPERACILLIN AND TAZOBACTAM [Concomitant]
     Indication: DRUG USE FOR UNKNOWN INDICATION
     Route: 051
     Dates: start: 20090306, end: 20090309

REACTIONS (2)
  - PYREXIA [None]
  - TONSILLITIS [None]
